FAERS Safety Report 5596714-0 (Version None)
Quarter: 2008Q1

REPORT INFORMATION
  Report Type: 
  Country: None (occurrence: None)
  Receive Date: 20080118
  Receipt Date: 20080109
  Transmission Date: 20080703
  Serious: Yes (Death)
  Sender: FDA-Public Use
  Company Number: US-PFIZER INC-2008002745

PATIENT
  Age: 32 Year
  Sex: Male

DRUGS (4)
  1. METHADONE HCL [Suspect]
  2. NAPRONTAG FLEX [Suspect]
  3. METAXALONE [Suspect]
  4. ALPRAZOLAM [Suspect]

REACTIONS (3)
  - CARDIAC ARREST [None]
  - DRUG ABUSE [None]
  - RESPIRATORY ARREST [None]
